FAERS Safety Report 14382271 (Version 1)
Quarter: 2018Q1

REPORT INFORMATION
  Report Type: Spontaneous
  Country: KR (occurrence: KR)
  Receive Date: 20180112
  Receipt Date: 20180112
  Transmission Date: 20180509
  Serious: Yes (Death, Other)
  Sender: FDA-Public Use
  Company Number: KR-MYLANLABS-2018M1001147

PATIENT
  Age: 69 Year
  Sex: Male

DRUGS (7)
  1. CYCLOSPORINE. [Concomitant]
     Active Substance: CYCLOSPORINE
     Indication: SCHNITZLER^S SYNDROME
     Dosage: UNK
     Route: 065
  2. DAPSONE. [Concomitant]
     Active Substance: DAPSONE
     Indication: SCHNITZLER^S SYNDROME
     Dosage: UNK
     Route: 065
  3. METHOTREXATE. [Concomitant]
     Active Substance: METHOTREXATE
     Indication: SCHNITZLER^S SYNDROME
     Dosage: UNK
     Route: 065
  4. KINERET [Suspect]
     Active Substance: ANAKINRA
     Indication: SCHNITZLER^S SYNDROME
     Dosage: 100MG DAILY
     Route: 058
  5. COLCHICINE. [Concomitant]
     Active Substance: COLCHICINE
     Indication: SCHNITZLER^S SYNDROME
     Dosage: UNK
     Route: 065
  6. PREDNISOLONE. [Suspect]
     Active Substance: PREDNISOLONE
     Indication: SCHNITZLER^S SYNDROME
     Dosage: AT THE TIME OF ADMISSION
     Route: 065
  7. PREDNISOLONE. [Suspect]
     Active Substance: PREDNISOLONE
     Dosage: TAPERED AFTER A MONTH.
     Route: 065

REACTIONS (1)
  - Pneumonia [Fatal]
